FAERS Safety Report 9302587 (Version 1)
Quarter: 2013Q2

REPORT INFORMATION
  Report Type: Spontaneous
  Country: DE (occurrence: DE)
  Receive Date: 20130522
  Receipt Date: 20130522
  Transmission Date: 20140414
  Serious: Yes (Other)
  Sender: FDA-Public Use
  Company Number: DE-BAYER-2013-061171

PATIENT
  Age: 32 Year
  Sex: Female

DRUGS (1)
  1. CIPROBAY [Suspect]
     Dosage: UNK

REACTIONS (2)
  - Rhabdomyolysis [None]
  - Renal failure [None]
